FAERS Safety Report 6905960-2 (Version None)
Quarter: 2010Q3

REPORT INFORMATION
  Report Type: 
  Country: None (occurrence: None)
  Receive Date: 20100804
  Receipt Date: 20100723
  Transmission Date: 20110219
  Serious: Yes (Other)
  Sender: FDA-Public Use
  Company Number: CA-ELI_LILLY_AND_COMPANY-CA201005000456

PATIENT
  Age: 74 Year
  Sex: Female

DRUGS (4)
  1. FORTEO [Suspect]
     Indication: OSTEOPOROSIS
     Dosage: 20 MG, DAILY (1/D)
     Route: 058
     Dates: start: 20090217, end: 20100415
  2. CALCIUM                                 /N/A/ [Concomitant]
  3. VITAMIN D [Concomitant]
  4. COD LIVER OIL [Concomitant]

REACTIONS (3)
  - FATIGUE [None]
  - LUNG ADENOCARCINOMA [None]
  - THYMOMA [None]
